FAERS Safety Report 10460903 (Version 1)
Quarter: 2014Q3

REPORT INFORMATION
  Report Type: Spontaneous
  Country: US (occurrence: None)
  Receive Date: 20140917
  Receipt Date: 20140917
  Transmission Date: 20150326
  Serious: Yes (Hospitalization)
  Sender: FDA-Public Use
  Company Number: None

PATIENT
  Age: 15 Year
  Sex: Female
  Weight: 77.11 kg

DRUGS (1)
  1. BACTRIM [Suspect]
     Active Substance: SULFAMETHOXAZOLE\TRIMETHOPRIM
     Indication: ACNE
     Dosage: 1 PILL, TWICE DAILY, TAKEN BY MOUTH
     Route: 048
     Dates: start: 20140529, end: 20140625

REACTIONS (15)
  - Liver disorder [None]
  - Blood thyroid stimulating hormone increased [None]
  - Myocardial necrosis marker increased [None]
  - Pyrexia [None]
  - Vomiting [None]
  - Dyspepsia [None]
  - Drug reaction with eosinophilia and systemic symptoms [None]
  - Gallbladder non-functioning [None]
  - Gastritis [None]
  - Rash generalised [None]
  - Hepatic enzyme increased [None]
  - Stomatitis [None]
  - Abdominal pain upper [None]
  - Abdominal discomfort [None]
  - Malaise [None]

NARRATIVE: CASE EVENT DATE: 20140625
